FAERS Safety Report 5739015-X (Version None)
Quarter: 2008Q2

REPORT INFORMATION
  Report Type: 
  Country: None (occurrence: None)
  Receive Date: 20080515
  Receipt Date: 20080506
  Transmission Date: 20081010
  Serious: Yes (Other)
  Sender: FDA-Public Use
  Company Number: US-JNJFOC-20071206358

PATIENT
  Sex: Male
  Weight: 76.2 kg

DRUGS (9)
  1. DURAGESIC-100 [Suspect]
     Indication: PAIN
     Route: 062
  2. CHANTIX [Concomitant]
     Indication: SMOKING CESSATION THERAPY
     Route: 048
  3. OXYCONTIN [Concomitant]
     Indication: PAIN
     Route: 048
  4. PEROCET [Concomitant]
     Indication: BREAKTHROUGH PAIN
     Dosage: 2-3 TIMES A DAY AS NEEDED
     Route: 048
  5. FLEXERIL [Concomitant]
     Indication: MUSCLE RELAXANT THERAPY
     Route: 048
  6. TRAZODONE HCL [Concomitant]
     Indication: SLEEP DISORDER
     Dosage: ONE AT BEDTIME AS NEEDED
     Route: 048
  7. LEXAPRO [Concomitant]
     Indication: DEPRESSION
     Route: 048
  8. AMBIEN CR [Concomitant]
     Indication: SLEEP DISORDER
     Dosage: ONE AT BEDTIME AS NEEDED
     Route: 048
  9. FLOMAX [Concomitant]
     Indication: PROSTATIC DISORDER
     Route: 048

REACTIONS (4)
  - APPLICATION SITE EXCORIATION [None]
  - APPLICATION SITE ULCER [None]
  - PRECANCEROUS CELLS PRESENT [None]
  - SKIN CANCER [None]
